FAERS Safety Report 25360862 (Version 1)
Quarter: 2025Q2

REPORT INFORMATION
  Report Type: Spontaneous
  Country: FR (occurrence: FR)
  Receive Date: 20250527
  Receipt Date: 20250527
  Transmission Date: 20250716
  Serious: Yes (Hospitalization, Other)
  Sender: ABBVIE
  Company Number: FR-ABBVIE-6289833

PATIENT
  Age: 64 Year

DRUGS (1)
  1. OZURDEX [Suspect]
     Active Substance: DEXAMETHASONE
     Indication: Product used for unknown indication
     Route: 050
     Dates: start: 20241210

REACTIONS (10)
  - Retinal vein occlusion [Unknown]
  - Eye injury [Unknown]
  - Visual acuity reduced [Unknown]
  - Ocular discomfort [Unknown]
  - Hypertonia [Unknown]
  - Macular oedema [Unknown]
  - Intraocular pressure test [Unknown]
  - Laser surgery [Unknown]
  - Clubbing [Unknown]
  - Eye pain [Unknown]

NARRATIVE: CASE EVENT DATE: 20250101
